FAERS Safety Report 8621391 (Version 2)
Quarter: 2012Q4

REPORT INFORMATION
  Report Type: 
  Country: JP (occurrence: JP)
  Receive Date: 20120619
  Receipt Date: 20120904
  Transmission Date: 20130627
  Serious: Yes (Hospitalization)
  Sender: FDA-Public Use
  Company Number: JP-ELI_LILLY_AND_COMPANY-JP201204007384

PATIENT
  Age: 82 Year
  Sex: Male

DRUGS (2)
  1. FORTEO [Suspect]
     Dosage: UNK
     Route: 058
     Dates: end: 201204
  2. FORTEO [Suspect]
     Dosage: UNK
     Route: 058
     Dates: end: 201205

REACTIONS (7)
  - Spinal operation [Recovered/Resolved]
  - Decreased appetite [Unknown]
  - Dysarthria [Unknown]
  - Grip strength decreased [Unknown]
  - Stress [Unknown]
  - Hypoaesthesia [Not Recovered/Not Resolved]
  - Adverse event [Unknown]
